FAERS Safety Report 6515771-8 (Version None)
Quarter: 2009Q4

REPORT INFORMATION
  Report Type: 
  Country: None (occurrence: None)
  Receive Date: 20091223
  Receipt Date: 20091215
  Transmission Date: 20100525
  Serious: Yes (Other)
  Sender: FDA-Public Use
  Company Number: JP-ASTRAZENECA-2009SE32907

PATIENT
  Age: 75 Year
  Sex: Male

DRUGS (6)
  1. BLOPRESS [Suspect]
     Indication: HYPERTENSION
     Route: 048
     Dates: start: 20051227
  2. BLOPRESS [Suspect]
     Route: 048
  3. CONIEL [Suspect]
     Route: 048
  4. INFLUENZA HA VACCINE [Suspect]
     Route: 042
     Dates: start: 20091120, end: 20091120
  5. HIRUDOID [Concomitant]
     Indication: XERODERMA
     Route: 062
  6. LOCOID [Concomitant]
     Indication: XERODERMA
     Route: 062

REACTIONS (1)
  - PHOTOSENSITIVITY REACTION [None]
